FAERS Safety Report 18377987 (Version 1)
Quarter: 2020Q4

REPORT INFORMATION
  Report Type: Spontaneous
  Country: US (occurrence: US)
  Receive Date: 20201013
  Receipt Date: 20201013
  Transmission Date: 20210114
  Serious: Yes (Life-Threatening)
  Sender: FDA-Public Use
  Company Number: US-PFIZER INC-2020392387

PATIENT
  Age: 79 Year
  Sex: Female

DRUGS (1)
  1. ATROPINE SULFATE. [Suspect]
     Active Substance: ATROPINE SULFATE
     Indication: CHEST PAIN
     Dosage: UNK
     Dates: start: 1981, end: 1981

REACTIONS (4)
  - Ventricular tachycardia [Unknown]
  - Respiratory arrest [Unknown]
  - Clonic convulsion [Unknown]
  - Cardiac arrest [Unknown]
